FAERS Safety Report 6146054-6 (Version None)
Quarter: 2009Q2

REPORT INFORMATION
  Report Type: 
  Country: None (occurrence: None)
  Receive Date: 20090407
  Receipt Date: 20090331
  Transmission Date: 20091009
  Serious: No
  Sender: FDA-Public Use
  Company Number: US-B.I. PHARMACEUTICALS,INC./RIDGEFIELD-2009-BP-04045BP

PATIENT
  Age: 78 Year
  Sex: Female

DRUGS (7)
  1. SPIRIVA [Suspect]
     Indication: CHRONIC OBSTRUCTIVE PULMONARY DISEASE
     Dosage: 18MCG
     Route: 055
     Dates: start: 20050101
  2. SPIRIVA [Suspect]
     Indication: EMPHYSEMA
  3. SEREVENT [Concomitant]
     Indication: CHRONIC OBSTRUCTIVE PULMONARY DISEASE
  4. AZMACORT [Concomitant]
     Indication: ASTHMA
  5. VENTOLIN [Concomitant]
     Indication: CHRONIC OBSTRUCTIVE PULMONARY DISEASE
  6. OXYBUTIN [Concomitant]
     Indication: BLADDER DISORDER
  7. TRIAMTERENE [Concomitant]
     Indication: BLOOD PRESSURE

REACTIONS (2)
  - ARTHROPATHY [None]
  - MACULAR DEGENERATION [None]
